FAERS Safety Report 9904563 (Version 1)
Quarter: 2014Q1

REPORT INFORMATION
  Report Type: Spontaneous
  Country: US (occurrence: US)
  Receive Date: 20140218
  Receipt Date: 20140218
  Transmission Date: 20141002
  Serious: No
  Sender: FDA-Public Use
  Company Number: US-009507513-1402USA006820

PATIENT
  Age: 20 Year
  Sex: Female

DRUGS (1)
  1. IMPLANON [Suspect]
     Indication: CONTRACEPTION
     Dosage: DOSE AND FREQUENCY UNSPECIFIED, IN UPPER LEFT ARM,
     Route: 059
     Dates: start: 20100516

REACTIONS (2)
  - Implant site pain [Unknown]
  - Incorrect drug administration duration [Unknown]
